FAERS Safety Report 5638024-9 (Version None)
Quarter: 2008Q1

REPORT INFORMATION
  Report Type: 
  Country: None (occurrence: None)
  Receive Date: 20080221
  Receipt Date: 20080207
  Transmission Date: 20080703
  Serious: Yes (Hospitalization)
  Sender: FDA-Public Use
  Company Number: 2008BI003220

PATIENT
  Age: 60 Year
  Sex: Female
  Weight: 49.8957 kg

DRUGS (1)
  1. AVONEX [Suspect]
     Indication: MULTIPLE SCLEROSIS
     Dosage: 30 UG; QW; IM
     Route: 030
     Dates: start: 20010101

REACTIONS (6)
  - ACIDOSIS [None]
  - BLOOD PRESSURE DECREASED [None]
  - CONVULSION [None]
  - DEAFNESS BILATERAL [None]
  - DIABETES MELLITUS [None]
  - DIALYSIS [None]
